FAERS Safety Report 20717023 (Version 1)
Quarter: 2022Q2

REPORT INFORMATION
  Report Type: Spontaneous
  Country: US (occurrence: US)
  Receive Date: 20220417
  Receipt Date: 20220417
  Transmission Date: 20220721
  Serious: No
  Sender: FDA-Public Use
  Company Number: US-SA-SAC20220411000495

PATIENT
  Sex: Female

DRUGS (11)
  1. DUPIXENT [Suspect]
     Active Substance: DUPILUMAB
     Indication: Dermatitis atopic
     Dosage: 300 MG, QOW
     Route: 058
     Dates: start: 20190208
  2. APAP [Concomitant]
     Active Substance: ACETAMINOPHEN
     Dosage: APAP/CODE-INE TAB 300-30MG
  3. ATORVASTATIN [Concomitant]
     Active Substance: ATORVASTATIN
  4. METFORMIN [Concomitant]
     Active Substance: METFORMIN HYDROCHLORIDE
  5. ROPINIROLE [Concomitant]
     Active Substance: ROPINIROLE
  6. ROZEREM [Concomitant]
     Active Substance: RAMELTEON
  7. TRULICITY [Concomitant]
     Active Substance: DULAGLUTIDE
     Dosage: TRULICITY INJ 3/0.5
  8. TYLENOL [Concomitant]
     Active Substance: ACETAMINOPHEN
     Dosage: TYLENOL DISS POW 500MG
  9. DULOXETINE [Concomitant]
     Active Substance: DULOXETINE
  10. LEVOTHYROXINE [Concomitant]
     Active Substance: LEVOTHYROXINE
  11. PREGABALIN [Concomitant]
     Active Substance: PREGABALIN
     Dosage: PREGABA IN CAP 50MC

REACTIONS (1)
  - Oral herpes [Unknown]
